FAERS Safety Report 20099962 (Version 1)
Quarter: 2021Q4

REPORT INFORMATION
  Report Type: Spontaneous
  Country: FR (occurrence: FR)
  Receive Date: 20211123
  Receipt Date: 20211123
  Transmission Date: 20220303
  Serious: Yes (Death, Other)
  Sender: FDA-Public Use
  Company Number: None

PATIENT
  Age: 84 Year
  Sex: Female

DRUGS (1)
  1. ELIQUIS [Suspect]
     Active Substance: APIXABAN
     Indication: Cerebrovascular accident prophylaxis
     Dosage: 1 DOSAGE FORM
     Route: 048
     Dates: start: 20201211, end: 20201215

REACTIONS (2)
  - Sudden death [Fatal]
  - Petechiae [Fatal]

NARRATIVE: CASE EVENT DATE: 20201215
